FAERS Safety Report 8402858-8 (Version None)
Quarter: 2012Q2

REPORT INFORMATION
  Report Type: 
  Country: None (occurrence: None)
  Receive Date: 20120323
  Receipt Date: 20110310
  Transmission Date: 20120825
  Serious: Yes (Other)
  Sender: FDA-Public Use
  Company Number: 163-21880-11031418

PATIENT
  Age: 69 Year
  Sex: Male

DRUGS (4)
  1. OMEPRAZOLE [Concomitant]
  2. DEXAMETHASONE [Concomitant]
  3. ASPIRIN [Concomitant]
  4. REVLIMID [Suspect]
     Indication: MYELOFIBROSIS
     Dosage: 15 MG, DAILY 21/28 DAYS, PO
     Route: 048
     Dates: start: 20110101, end: 20110216

REACTIONS (4)
  - DIZZINESS [None]
  - ASTHENIA [None]
  - SKIN DISCOLOURATION [None]
  - PARAESTHESIA [None]
